FAERS Safety Report 20853493 (Version 1)
Quarter: 2022Q2

REPORT INFORMATION
  Report Type: Spontaneous
  Country: QA (occurrence: QA)
  Receive Date: 20220520
  Receipt Date: 20220520
  Transmission Date: 20220721
  Serious: Yes (Other)
  Sender: FDA-Public Use
  Company Number: QA-PFIZER INC-202200692171

PATIENT
  Age: 6 Decade
  Sex: Female

DRUGS (1)
  1. LORBRENA [Suspect]
     Active Substance: LORLATINIB
     Indication: Non-small cell lung cancer
     Dosage: UNK

REACTIONS (7)
  - Nervous system disorder [Unknown]
  - Renal impairment [Unknown]
  - Interstitial lung disease [Unknown]
  - Hypercholesterolaemia [Unknown]
  - Hypertriglyceridaemia [Unknown]
  - Atrioventricular block second degree [Unknown]
  - Hepatic function abnormal [Unknown]
